FAERS Safety Report 25484568 (Version 1)
Quarter: 2025Q2

REPORT INFORMATION
  Report Type: Spontaneous
  Country: US (occurrence: None)
  Receive Date: 20250627
  Receipt Date: 20250627
  Transmission Date: 20250716
  Serious: Yes (Hospitalization)
  Sender: FDA-CTU
  Company Number: None

PATIENT
  Age: 69 Year
  Sex: Male

DRUGS (1)
  1. HUMIRA [Suspect]
     Active Substance: ADALIMUMAB
     Indication: Gastrointestinal inflammation
     Dosage: 40MG EVERY OTHER WEEK ?

REACTIONS (3)
  - Drug ineffective [None]
  - Dehydration [None]
  - Therapy cessation [None]

NARRATIVE: CASE EVENT DATE: 20250624
